FAERS Safety Report 5808663-0 (Version None)
Quarter: 2008Q3

REPORT INFORMATION
  Report Type: 
  Country: None (occurrence: None)
  Receive Date: 20080714
  Receipt Date: 20080708
  Transmission Date: 20090109
  Serious: Yes (Hospitalization)
  Sender: FDA-Public Use
  Company Number: NO-JNJFOC-20080702263

PATIENT
  Sex: Female

DRUGS (6)
  1. REMICADE [Suspect]
     Indication: COLITIS ULCERATIVE
     Dosage: 2 DOSES; CUMULATIVE DOES=800 MG
     Route: 042
  2. IMUREL [Suspect]
  3. IMUREL [Suspect]
     Indication: COLITIS ULCERATIVE
  4. DIPENTUM [Concomitant]
  5. MAXALT [Concomitant]
  6. IMIGRAN [Concomitant]

REACTIONS (2)
  - OPPORTUNISTIC INFECTION [None]
  - PNEUMOCYSTIS JIROVECI PNEUMONIA [None]
